FAERS Safety Report 16985889 (Version 1)
Quarter: 2019Q4

REPORT INFORMATION
  Report Type: Spontaneous
  Country: US (occurrence: US)
  Receive Date: 20191031
  Receipt Date: 20191031
  Transmission Date: 20200122
  Serious: Yes (Disabling)
  Sender: FDA-Public Use
  Company Number: None

PATIENT
  Age: 43 Year
  Sex: Female
  Weight: 54 kg

DRUGS (6)
  1. FLUTICASONE-SALMETEROL 232-14 MCG/PUFF INHALERS [Concomitant]
     Active Substance: FLUTICASONE FUROATE\SALMETEROL XINAFOATE
     Indication: ASTHMA
     Route: 055
     Dates: start: 20190101, end: 20191001
  2. MULTIVITAMIN [Concomitant]
     Active Substance: VITAMINS
  3. ALBUTEROL. [Concomitant]
     Active Substance: ALBUTEROL
  4. FLUTICASONE-SALMETEROL 232-14 MCG/PUFF INHALER [Concomitant]
  5. ZYRTEC [Concomitant]
     Active Substance: CETIRIZINE HYDROCHLORIDE
  6. ADDERALL [Concomitant]
     Active Substance: AMPHETAMINE ASPARTATE\AMPHETAMINE SULFATE\DEXTROAMPHETAMINE SACCHARATE\DEXTROAMPHETAMINE SULFATE

REACTIONS (2)
  - Device malfunction [None]
  - Drug dose omission by device [None]

NARRATIVE: CASE EVENT DATE: 20191001
